FAERS Safety Report 5838260-2 (Version None)
Quarter: 2008Q3

REPORT INFORMATION
  Report Type: 
  Country: None (occurrence: None)
  Receive Date: 20080808
  Receipt Date: 20080731
  Transmission Date: 20090109
  Serious: Yes (Other)
  Sender: FDA-Public Use
  Company Number: GB-AVENTIS-200813596EU

PATIENT
  Age: 46 Year
  Sex: Female

DRUGS (4)
  1. ENOXAPARIN SODIUM [Suspect]
     Route: 058
     Dates: start: 20080113
  2. PROGESTERONE [Concomitant]
     Indication: PREGNANCY
     Route: 048
     Dates: start: 20080520, end: 20080623
  3. FOLIC ACID [Concomitant]
  4. EVOREL                             /00045401/ [Concomitant]
     Indication: PREGNANCY
     Route: 062
     Dates: start: 20080513, end: 20080623

REACTIONS (2)
  - ABORTION SPONTANEOUS [None]
  - DRUG EXPOSURE DURING PREGNANCY [None]
